FAERS Safety Report 17352566 (Version 5)
Quarter: 2021Q2

REPORT INFORMATION
  Report Type: Spontaneous
  Country: JP (occurrence: JP)
  Receive Date: 20200131
  Receipt Date: 20210416
  Transmission Date: 20210716
  Serious: Yes (Death, Hospitalization, Other)
  Sender: FDA-Public Use
  Company Number: JP-ALEXION PHARMACEUTICALS INC.-A202000735

PATIENT
  Age: 87 Year
  Sex: Female
  Weight: 30 kg

DRUGS (3)
  1. ULTOMIRIS [Suspect]
     Active Substance: RAVULIZUMAB-CWVZ
     Indication: PAROXYSMAL NOCTURNAL HAEMOGLOBINURIA
     Dosage: UNK
     Route: 042
     Dates: start: 20190919
  2. WARFARIN [Concomitant]
     Active Substance: WARFARIN
     Indication: PRODUCT USED FOR UNKNOWN INDICATION
     Dosage: UNK
     Route: 065
  3. ULTOMIRIS [Suspect]
     Active Substance: RAVULIZUMAB-CWVZ
     Dosage: 3000 MG, UNK
     Route: 042
     Dates: end: 20210223

REACTIONS (6)
  - Musculoskeletal stiffness [Unknown]
  - Asthenia [Fatal]
  - Femur fracture [Not Recovered/Not Resolved]
  - Haemolysis [Recovering/Resolving]
  - Necrosis [Unknown]
  - Pneumonia [Fatal]

NARRATIVE: CASE EVENT DATE: 20200118
